FAERS Safety Report 9263896 (Version 1)
Quarter: 2013Q2

REPORT INFORMATION
  Report Type: Spontaneous
  Country: US (occurrence: None)
  Receive Date: 20130429
  Receipt Date: 20130429
  Transmission Date: 20140414
  Serious: Yes (Hospitalization, Disabling)
  Sender: FDA-Public Use
  Company Number: None

PATIENT
  Age: 59 Year
  Sex: Male
  Weight: 137.44 kg

DRUGS (1)
  1. COMBIVENT RESPIMAT [Suspect]
     Indication: CHRONIC OBSTRUCTIVE PULMONARY DISEASE
     Dosage: 2 PUFFS 2  TO 4 HOURS
     Route: 055
     Dates: start: 20130308, end: 20130308

REACTIONS (2)
  - Drug ineffective [None]
  - Device malfunction [None]
